FAERS Safety Report 6916045-3 (Version None)
Quarter: 2010Q3

REPORT INFORMATION
  Report Type: 
  Country: None (occurrence: None)
  Receive Date: 20100810
  Receipt Date: 20100804
  Transmission Date: 20110219
  Serious: Yes (Hospitalization)
  Sender: FDA-Public Use
  Company Number: US-BIOGENIDEC-2010BI026139

PATIENT
  Age: 47 Year
  Sex: Female
  Weight: 131 kg

DRUGS (2)
  1. AVONEX [Suspect]
     Indication: MULTIPLE SCLEROSIS
     Route: 030
     Dates: start: 20080601
  2. AVONEX [Suspect]
     Route: 030
     Dates: start: 20070101

REACTIONS (3)
  - CYSTITIS [None]
  - DIZZINESS [None]
  - PULMONARY THROMBOSIS [None]
